FAERS Safety Report 4424618-5 (Version None)
Quarter: 2004Q3

REPORT INFORMATION
  Report Type: 
  Country: None (occurrence: None)
  Receive Date: 20040719
  Receipt Date: 20031107
  Transmission Date: 20050211
  Serious: No
  Sender: FDA-Public Use
  Company Number: 185471

PATIENT
  Age: 24 Year
  Sex: Female

DRUGS (11)
  1. AVONEX [Suspect]
     Indication: MULTIPLE SCLEROSIS
     Dates: start: 20020125, end: 20030101
  2. AVONEX [Suspect]
     Indication: MULTIPLE SCLEROSIS
     Dates: start: 20030919, end: 20030919
  3. AVONEX [Suspect]
     Indication: MULTIPLE SCLEROSIS
  4. TRAZODONE [Concomitant]
  5. ZANAFLEX [Concomitant]
  6. NEURONTIN [Concomitant]
  7. DETROL [Concomitant]
  8. PROZAC [Concomitant]
  9. MAXZIDE [Concomitant]
  10. RANITIDINE [Concomitant]
  11. TYLENOL [Concomitant]

REACTIONS (3)
  - ANAPHYLACTIC REACTION [None]
  - MUSCLE SPASTICITY [None]
  - MUSCULOSKELETAL STIFFNESS [None]
